FAERS Safety Report 20791293 (Version 1)
Quarter: 2022Q2

REPORT INFORMATION
  Report Type: Spontaneous
  Country: FR (occurrence: FR)
  Receive Date: 20220505
  Receipt Date: 20220505
  Transmission Date: 20220721
  Serious: Yes (Hospitalization)
  Sender: FDA-Public Use
  Company Number: None

PATIENT
  Age: 68 Year
  Sex: Male
  Weight: 67 kg

DRUGS (16)
  1. LANSOPRAZOLE [Suspect]
     Active Substance: LANSOPRAZOLE
     Indication: Gastrointestinal disorder
     Dosage: 15 MG, QD
     Route: 048
     Dates: start: 202103, end: 20210421
  2. LANSOPRAZOLE [Suspect]
     Active Substance: LANSOPRAZOLE
     Dosage: 15 MG, QD
     Route: 048
     Dates: start: 20210427, end: 20210430
  3. VIMPAT [Suspect]
     Active Substance: LACOSAMIDE
     Indication: Seizure prophylaxis
     Dosage: 1 G, QD
     Route: 048
     Dates: start: 20210401, end: 20210503
  4. ALFUZOSIN [Suspect]
     Active Substance: ALFUZOSIN
     Indication: Product used for unknown indication
     Dosage: INCONNUE
     Route: 048
     Dates: start: 20210418, end: 20210421
  5. ALFUZOSIN [Suspect]
     Active Substance: ALFUZOSIN
     Dosage: INCONNUE
     Route: 048
     Dates: start: 20210427, end: 20210503
  6. OPDIVO [Suspect]
     Active Substance: NIVOLUMAB
     Indication: Metastatic malignant melanoma
     Dosage: INCONNUE
     Route: 041
     Dates: start: 20210419, end: 20210419
  7. IOBITRIDOL [Suspect]
     Active Substance: IOBITRIDOL
     Indication: Product used for unknown indication
     Dosage: 5 ADMINISTRATIONS SUR LA P?RIODE CF COMMENTAIRE
     Route: 042
     Dates: start: 20210222, end: 20210430
  8. BACTRIM [Suspect]
     Active Substance: SULFAMETHOXAZOLE\TRIMETHOPRIM
     Indication: Pneumocystis jirovecii pneumonia
     Dosage: 12 DOSAGE FORM, QD
     Route: 041
     Dates: start: 20210422, end: 20210430
  9. YERVOY [Suspect]
     Active Substance: IPILIMUMAB
     Indication: Metastatic malignant melanoma
     Dosage: INCONNUE
     Route: 041
     Dates: start: 20210419, end: 20210419
  10. INNOHEP [Concomitant]
     Active Substance: TINZAPARIN SODIUM
     Indication: Product used for unknown indication
     Dosage: 1 DOSAGE FORM, QD
     Route: 058
     Dates: start: 20210427
  11. PIPERACILLIN SODIUM\TAZOBACTAM SODIUM [Concomitant]
     Active Substance: PIPERACILLIN SODIUM\TAZOBACTAM SODIUM
     Indication: Product used for unknown indication
     Dosage: 16 G, QD, INCONNUE
     Route: 042
     Dates: start: 20210421, end: 20210426
  12. OLANZAPINE [Concomitant]
     Active Substance: OLANZAPINE
     Indication: Product used for unknown indication
     Dosage: INCONNUE
     Route: 048
     Dates: start: 20210402, end: 20210420
  13. CIPROFLOXACIN [Concomitant]
     Active Substance: CIPROFLOXACIN
     Indication: Product used for unknown indication
     Dosage: 1 G, QD, INCONNUE
     Route: 042
     Dates: start: 20210404, end: 20210416
  14. SPIRAMYCIN [Concomitant]
     Active Substance: SPIRAMYCIN
     Indication: Product used for unknown indication
     Dosage: INCONNUE
     Route: 042
     Dates: start: 20210421, end: 20210422
  15. RAMIPRIL [Concomitant]
     Active Substance: RAMIPRIL
     Indication: Product used for unknown indication
     Dosage: 25 MG, QD
     Route: 048
     Dates: start: 202103, end: 20210421
  16. RAMIPRIL [Concomitant]
     Active Substance: RAMIPRIL
     Dosage: 25 MG, QD
     Route: 048
     Dates: start: 20210429

REACTIONS (1)
  - Drug reaction with eosinophilia and systemic symptoms [Recovered/Resolved]

NARRATIVE: CASE EVENT DATE: 20210430
